FAERS Safety Report 5324318-3 (Version None)
Quarter: 2007Q2

REPORT INFORMATION
  Report Type: 
  Country: None (occurrence: None)
  Receive Date: 20070514
  Receipt Date: 20070509
  Transmission Date: 20071010
  Serious: Yes (Hospitalization)
  Sender: FDA-Public Use
  Company Number: GB-BOEHRINGER INGELHEIM PHARMACEUTICALS, INC.-2007-UK-01526UK

PATIENT
  Age: 46 Year
  Sex: Female

DRUGS (1)
  1. CATAPRES [Suspect]
     Route: 048
     Dates: start: 20070411, end: 20070424

REACTIONS (3)
  - CONFUSIONAL STATE [None]
  - CONVULSION [None]
  - LETHARGY [None]
